FAERS Safety Report 7583120-2 (Version None)
Quarter: 2011Q2

REPORT INFORMATION
  Report Type: 
  Country: None (occurrence: None)
  Receive Date: 20110627
  Receipt Date: 20110627
  Transmission Date: 20111010
  Serious: Yes (Death, Hospitalization)
  Sender: FDA-Public Use
  Company Number: None

PATIENT
  Sex: Male
  Weight: 75.2 kg

DRUGS (2)
  1. REMERON [Concomitant]
  2. BEVACIZUMAB (RHUMAB VEGF) [Suspect]
     Dosage: 1085 MG
     Dates: end: 20110526

REACTIONS (1)
  - COMPLETED SUICIDE [None]
